FAERS Safety Report 24921840 (Version 1)
Quarter: 2025Q1

REPORT INFORMATION
  Report Type: Spontaneous
  Country: FR (occurrence: FR)
  Receive Date: 20250204
  Receipt Date: 20250204
  Transmission Date: 20250409
  Serious: Yes (Hospitalization)
  Sender: RANBAXY
  Company Number: FR-SUN PHARMACEUTICAL INDUSTRIES LTD-2025RR-492375

PATIENT
  Age: 89 Year
  Sex: Female

DRUGS (1)
  1. MORPHINE [Suspect]
     Active Substance: MORPHINE
     Indication: Pain management
     Route: 040
     Dates: start: 20240816, end: 20240820

REACTIONS (1)
  - Bradypnoea [Recovered/Resolved]

NARRATIVE: CASE EVENT DATE: 20240820
